FAERS Safety Report 5199661-1 (Version None)
Quarter: 2007Q1

REPORT INFORMATION
  Report Type: 
  Country: None (occurrence: None)
  Receive Date: 20070103
  Receipt Date: 20070103
  Transmission Date: 20070707
  Serious: Yes (Hospitalization)
  Sender: FDA-Public Use
  Company Number: None

PATIENT
  Age: 86 Year
  Sex: Female

DRUGS (2)
  1. HEPARIN [Suspect]
     Indication: ATRIAL FIBRILLATION
     Dosage: 5000 UNITS  BID  SQ
     Route: 058
     Dates: start: 20051221, end: 20051224
  2. ZYVOX [Suspect]
     Indication: UROSEPSIS
     Dosage: 600 MG  Q12  IV
     Route: 042
     Dates: start: 20051226, end: 20060104

REACTIONS (1)
  - THROMBOCYTOPENIA [None]
